FAERS Safety Report 8660344 (Version 5)
Quarter: 2012Q4

REPORT INFORMATION
  Report Type: Report from Study
  Country: US (occurrence: US)
  Receive Date: 20120711
  Receipt Date: 20120904
  Transmission Date: 20130627
  Serious: Yes (Hospitalization)
  Sender: FDA-Public Use
  Company Number: US-SANOFI-AVENTIS-2012SA047415

PATIENT
  Age: 50 Year
  Sex: Female
  Weight: 72.6 kg

DRUGS (19)
  1. DOCETAXEL [Suspect]
     Indication: HER-2 POSITIVE BREAST CANCER
     Route: 042
     Dates: start: 20120228
  2. CARBOPLATIN [Suspect]
     Indication: HER-2 POSITIVE BREAST CANCER
     Route: 042
     Dates: start: 20120228
  3. TRASTUZUMAB [Suspect]
     Indication: HER-2 POSITIVE BREAST CANCER
     Route: 042
     Dates: start: 20120228
  4. BLINDED THERAPY [Suspect]
     Indication: HER-2 POSITIVE BREAST CANCER
     Route: 042
     Dates: start: 20120228
  5. BLINDED THERAPY [Suspect]
     Indication: HER-2 POSITIVE BREAST CANCER
     Route: 042
     Dates: start: 20120228
  6. CIPROFLOXACIN [Concomitant]
     Dosage: opthalmic solution
     Route: 047
  7. CITALOPRAM [Concomitant]
     Route: 048
  8. DEXAMETHASONE [Concomitant]
     Route: 048
  9. ATROPINE SULFATE/DIPHENOXYLATE HYDROCHLORIDE [Concomitant]
  10. LOPERAMIDE [Concomitant]
     Route: 048
  11. LORAZEPAM [Concomitant]
     Route: 048
  12. MAGNESIUM OXIDE [Concomitant]
     Route: 048
  13. MECLIZINE [Concomitant]
     Route: 048
  14. OMEPRAZOLE [Concomitant]
     Route: 048
  15. PREDNISOLONE ACETATE [Concomitant]
  16. PROCHLORPERAZINE MALEATE [Concomitant]
     Route: 048
  17. SIMVASTATIN [Concomitant]
     Route: 048
  18. SPIRONOLACTONE [Concomitant]
     Route: 048
  19. TRAMADOL [Concomitant]
     Route: 048

REACTIONS (7)
  - Hyponatraemia [Unknown]
  - Hypokalaemia [Recovered/Resolved]
  - Asthenia [Recovered/Resolved]
  - Urinary tract infection [Recovered/Resolved]
  - Asthenia [Recovered/Resolved]
  - Diarrhoea [Recovered/Resolved]
  - Vomiting [Recovered/Resolved]
